FAERS Safety Report 9822128 (Version 1)
Quarter: 2014Q1

REPORT INFORMATION
  Report Type: Spontaneous
  Country: US (occurrence: US)
  Receive Date: 20140116
  Receipt Date: 20140116
  Transmission Date: 20141002
  Serious: Yes (Other)
  Sender: FDA-Public Use
  Company Number: US-GLAXOSMITHKLINE-A1056790A

PATIENT
  Sex: Female

DRUGS (1)
  1. ZOFRAN [Suspect]
     Indication: NAUSEA
     Route: 042
     Dates: start: 20111228

REACTIONS (3)
  - Brain injury [Unknown]
  - Cardio-respiratory arrest [Unknown]
  - Heart injury [Unknown]
